FAERS Safety Report 8876991 (Version 1)
Quarter: 2012Q4

REPORT INFORMATION
  Report Type: 
  Country: US (occurrence: US)
  Receive Date: 20121023
  Receipt Date: 20121023
  Transmission Date: 20130627
  Serious: Yes (Hospitalization)
  Sender: FDA-Public Use
  Company Number: US-AMGEN-USASP2012055832

PATIENT
  Age: 28 Year
  Sex: Male

DRUGS (19)
  1. ENBREL [Suspect]
     Indication: PSORIASIS
     Dosage: 50 mg, qwk
     Route: 058
     Dates: start: 20030615
  2. SORIATANE [Concomitant]
     Dosage: 17.5 mg, UNK
  3. HUMIRA [Concomitant]
     Dosage: UNK
  4. STELARA [Concomitant]
     Dosage: UNK
  5. CENTRUM                            /02267801/ [Concomitant]
     Dosage: UNK
  6. PRISTIQ [Concomitant]
     Dosage: 50 mg, UNK
  7. XANAX [Concomitant]
     Dosage: 0.25 mg, UNK
  8. SOMA [Concomitant]
     Dosage: 250 mg, UNK
  9. ROXICODONE [Concomitant]
     Dosage: 5 mg, UNK
  10. VOLTAREN                           /00372301/ [Concomitant]
     Dosage: 1 %, UNK
  11. IBUPROFEN [Concomitant]
     Dosage: 200 mg, UNK
  12. PERCOCET                           /00446701/ [Concomitant]
     Dosage: 2.5-325
  13. ANTIOXIDANT                        /02147801/ [Concomitant]
     Dosage: UNK
  14. GLUTAMINE [Concomitant]
     Dosage: UNK
  15. ABILIFY [Concomitant]
     Dosage: 5 mg, UNK
  16. TESTOSTERONE ENANTATE [Concomitant]
     Dosage: 200 mg/ml, UNK
  17. CEREFOLIN NAC [Concomitant]
     Dosage: UNK
  18. CITRACAL PLUS [Concomitant]
     Dosage: UNK
  19. VALIUM                             /00017001/ [Concomitant]
     Dosage: 2 mg, UNK

REACTIONS (7)
  - Post procedural infection [Recovered/Resolved]
  - Back injury [Recovered/Resolved]
  - Nasal discomfort [Unknown]
  - Nasal dryness [Unknown]
  - Accident [Recovered/Resolved]
  - VIIth nerve paralysis [Recovered/Resolved]
  - Psoriasis [Not Recovered/Not Resolved]
